FAERS Safety Report 4456235-5 (Version None)
Quarter: 2004Q3

REPORT INFORMATION
  Report Type: 
  Country: None (occurrence: None)
  Receive Date: 20040920
  Receipt Date: 20040907
  Transmission Date: 20050211
  Serious: Yes (Other)
  Sender: FDA-Public Use
  Company Number: 2004063962

PATIENT
  Age: 42 Year
  Sex: Male
  Weight: 71.5 kg

DRUGS (1)
  1. GLIPIZIDE [Suspect]
     Indication: DIABETES MELLITUS
     Dosage: 20 MG (20 MG, 1 IN 1 D)

REACTIONS (14)
  - BENIGN PANCREATIC NEOPLASM [None]
  - BLOOD ALBUMIN DECREASED [None]
  - CHOLELITHIASIS [None]
  - DUODENAL NEOPLASM [None]
  - GASTRITIS [None]
  - GLYCOSYLATED HAEMOGLOBIN INCREASED [None]
  - HYPERPLASIA [None]
  - HYPOGLYCAEMIA [None]
  - LABORATORY TEST ABNORMAL [None]
  - LIPID METABOLISM DISORDER [None]
  - PANCREATIC ATROPHY [None]
  - POST PROCEDURAL COMPLICATION [None]
  - SOMATOSTATIN RECEPTOR SCAN ABNORMAL [None]
  - VASOACTIVE INTESTINAL POLYPEPTIDE TEST [None]
